FAERS Safety Report 9256818 (Version 1)
Quarter: 2013Q2

REPORT INFORMATION
  Report Type: Spontaneous
  Country: US (occurrence: None)
  Receive Date: 20130423
  Receipt Date: 20130423
  Transmission Date: 20140414
  Serious: Yes (Hospitalization, Other)
  Sender: FDA-Public Use
  Company Number: None

PATIENT
  Age: 57 Year
  Sex: Female
  Weight: 61.24 kg

DRUGS (1)
  1. FORTEO [Suspect]
     Indication: OSTEOPOROSIS
     Dosage: 20 MCG  ONCE DAILY  SQ
     Route: 058
     Dates: start: 20130301, end: 20130422

REACTIONS (7)
  - Abdominal distension [None]
  - Frequent bowel movements [None]
  - Confusional state [None]
  - Lip dry [None]
  - Swelling [None]
  - Urine output decreased [None]
  - Blood pressure increased [None]
